FAERS Safety Report 8520950-4 (Version None)
Quarter: 2012Q3

REPORT INFORMATION
  Report Type: 
  Country: None (occurrence: None)
  Receive Date: 20120719
  Receipt Date: 20120710
  Transmission Date: 20120928
  Serious: Yes (Other)
  Sender: FDA-Public Use
  Company Number: US-ASTRAZENECA-2012SE47408

PATIENT
  Age: 56 Year
  Sex: Male

DRUGS (2)
  1. PIPERACILLIN AND TAZOBACTAM [Interacting]
     Indication: OSTEOMYELITIS BACTERIAL
     Route: 042
  2. MEROPENEM [Suspect]
     Indication: NOSOCOMIAL INFECTION
     Route: 042

REACTIONS (4)
  - TUBULOINTERSTITIAL NEPHRITIS [None]
  - RASH [None]
  - RENAL IMPAIRMENT [None]
  - DRUG INTERACTION [None]
